FAERS Safety Report 4753246-7 (Version None)
Quarter: 2005Q3

REPORT INFORMATION
  Report Type: 
  Country: None (occurrence: None)
  Receive Date: 20050824
  Receipt Date: 20050805
  Transmission Date: 20060218
  Serious: Yes (Hospitalization)
  Sender: FDA-Public Use
  Company Number: 2005BH001133

PATIENT
  Age: 27 Year
  Sex: Female
  Weight: 93.8946 kg

DRUGS (3)
  1. SODIUM CITRATE [Suspect]
     Dates: start: 20050618, end: 20050618
  2. SODIUM CHLORIDE 0.9% [Suspect]
     Dates: start: 20050618, end: 20050618
  3. ALBUTEROL [Concomitant]

REACTIONS (7)
  - FOOT FRACTURE [None]
  - INCISION SITE COMPLICATION [None]
  - LOSS OF CONSCIOUSNESS [None]
  - MULTIPLE FRACTURES [None]
  - POSTOPERATIVE INFECTION [None]
  - ROAD TRAFFIC ACCIDENT [None]
  - SYNCOPE [None]
